FAERS Safety Report 7148502-1 (Version None)
Quarter: 2010Q4

REPORT INFORMATION
  Report Type: 
  Country: None (occurrence: None)
  Receive Date: 20101209
  Receipt Date: 20101129
  Transmission Date: 20110411
  Serious: No
  Sender: FDA-Public Use
  Company Number: US-B.I. PHARMACEUTICALS,INC./RIDGEFIELD-2010-BP-13551BP

PATIENT
  Sex: Female
  Weight: 74.84 kg

DRUGS (12)
  1. PRADAXA [Suspect]
     Indication: ATRIAL FIBRILLATION
     Dosage: 150 MG
     Route: 048
     Dates: start: 20101201
  2. VICODIN [Concomitant]
     Indication: PAIN
     Dosage: 5/500; ONE EVERY 4-6 HOURS AS NEEDED
     Route: 048
  3. PRILOSEC [Concomitant]
     Dosage: 20 MG
     Route: 048
  4. ADVAIR DISKUS 100/50 [Concomitant]
     Dosage: INHALE 1 PUFF 2 TIMES EVERY MORNING AND EVENING 12 HRS APART
     Route: 055
  5. ALPRAZOLAM [Concomitant]
     Dosage: 0.5 MG
     Route: 048
  6. HYCODAN [Concomitant]
     Dosage: 5-1.5MG/5; 1 TSP EVERY 4-6 HRS AS NEEDED
     Route: 048
  7. COMBIVENT [Concomitant]
     Dosage: 8 PUF
     Route: 055
  8. SIMVASTATIN [Concomitant]
     Dosage: 20 MG
     Route: 048
  9. ATENOLOL [Concomitant]
     Dosage: 100 MG
     Route: 048
  10. TRICOR [Concomitant]
     Dosage: 48 MG
     Route: 048
  11. PROZAC [Concomitant]
     Dosage: 40 MG
     Route: 048
  12. COUMADIN [Concomitant]
     Indication: ATRIAL FIBRILLATION
     Dosage: 1 - 1.5 AS DIRECTED BY PHYSICIAN
     Route: 048

REACTIONS (1)
  - THROAT IRRITATION [None]
